FAERS Safety Report 8886240 (Version 7)
Quarter: 2014Q1

REPORT INFORMATION
  Report Type: Spontaneous
  Country: US (occurrence: US)
  Receive Date: 20121105
  Receipt Date: 20140317
  Transmission Date: 20141002
  Serious: Yes (Hospitalization, Other)
  Sender: FDA-Public Use
  Company Number: US-009507513-1210USA012429

PATIENT
  Sex: Female

DRUGS (7)
  1. FOSAMAX [Suspect]
     Indication: OSTEOPOROSIS
     Dosage: 70 MG, UNK
     Route: 048
     Dates: end: 2008
  2. FOSAMAX [Suspect]
     Indication: OSTEOPENIA
  3. ALENDRONATE SODIUM [Suspect]
     Indication: OSTEOPOROSIS
     Dosage: 35 MG, UNK
     Route: 048
     Dates: start: 2008, end: 2011
  4. ALENDRONATE SODIUM [Suspect]
     Indication: OSTEOPENIA
  5. CALCIUM (UNSPECIFIED) [Concomitant]
     Dosage: UNK, QD
     Dates: start: 1993
  6. VITAMIN D (UNSPECIFIED) [Concomitant]
     Dosage: UNK UNK, QD
     Route: 048
     Dates: start: 2001
  7. VITAMINS (UNSPECIFIED) [Concomitant]
     Dosage: ONE DAILY
     Dates: start: 1956

REACTIONS (41)
  - Femur fracture [Unknown]
  - Intramedullary rod insertion [Unknown]
  - Fall [Unknown]
  - Anaemia [Recovering/Resolving]
  - Spinal operation [Unknown]
  - Prolapse repair [Unknown]
  - Pelvic prolapse [Unknown]
  - Osteoporosis [Unknown]
  - Osteosclerosis [Unknown]
  - Osteopenia [Not Recovered/Not Resolved]
  - Chronic obstructive pulmonary disease [Not Recovered/Not Resolved]
  - Fall [Unknown]
  - Product used for unknown indication [Unknown]
  - Depression [Unknown]
  - Hypertension [Unknown]
  - Thrombosis [Unknown]
  - Vitamin D deficiency [Unknown]
  - Adverse event [Unknown]
  - Knee operation [Unknown]
  - Breast tenderness [Unknown]
  - Osteoarthritis [Unknown]
  - Joint effusion [Unknown]
  - Synovial cyst [Unknown]
  - Meniscal degeneration [Unknown]
  - Exostosis [Unknown]
  - Vascular calcification [Unknown]
  - Osteoarthritis [Unknown]
  - Fall [Unknown]
  - Spinal column stenosis [Unknown]
  - Scoliosis [Unknown]
  - Intervertebral disc degeneration [Unknown]
  - Bronchiectasis [Unknown]
  - Fibromyalgia [Unknown]
  - Extrasystoles [Unknown]
  - Glaucoma [Unknown]
  - Tonsillectomy [Unknown]
  - Appendicectomy [Unknown]
  - Spinal osteoarthritis [Unknown]
  - Bone disorder [Unknown]
  - Back pain [Not Recovered/Not Resolved]
  - Pain in extremity [Unknown]
